FAERS Safety Report 25464604 (Version 1)
Quarter: 2025Q2

REPORT INFORMATION
  Report Type: Spontaneous
  Country: VN (occurrence: VN)
  Receive Date: 20250621
  Receipt Date: 20250621
  Transmission Date: 20250717
  Serious: Yes (Life-Threatening)
  Sender: VERITY PHARMACEUTICALS INC.
  Company Number: VN-VER-202500001

PATIENT
  Age: 31 Year
  Sex: Female

DRUGS (2)
  1. TRIPTORELIN [Suspect]
     Active Substance: TRIPTORELIN
     Indication: Arteriovenous malformation
     Route: 065
  2. TRIPTORELIN [Suspect]
     Active Substance: TRIPTORELIN
     Indication: Off label use
     Route: 065

REACTIONS (1)
  - Off label use [Unknown]
